FAERS Safety Report 5875380-0 (Version None)
Quarter: 2008Q3

REPORT INFORMATION
  Report Type: 
  Country: None (occurrence: None)
  Receive Date: 20080904
  Receipt Date: 20080821
  Transmission Date: 20090109
  Serious: Yes (Hospitalization)
  Sender: FDA-Public Use
  Company Number: 2008001921

PATIENT
  Age: 65 Year
  Sex: Female
  Weight: 69 kg

DRUGS (13)
  1. ERLOTINIB (ERLOTINIB) (TABLET) (ERLOTINIB) [Suspect]
     Indication: NON-SMALL CELL LUNG CANCER
     Dosage: 150 MG, QD, ORAL
     Route: 048
     Dates: start: 20080626, end: 20080714
  2. SUNITINIB/PLACEBO [Suspect]
     Indication: NON-SMALL CELL LUNG CANCER
     Dosage: ORAL
     Route: 048
     Dates: start: 20080626, end: 20080714
  3. CEFUROXIME AXETIL [Suspect]
     Dates: start: 20080703, end: 20080712
  4. PRAZEPAM [Concomitant]
  5. TIOTROPIUM [Concomitant]
  6. SYMBICORT (SYMBICORT) [Concomitant]
  7. LANSOPRAZOLE [Concomitant]
  8. PRIMPERAN TAB [Concomitant]
  9. IBUPROFEN [Concomitant]
  10. LOPERAMIDE [Concomitant]
  11. ACETAMINOPHEN [Concomitant]
  12. LEVOCETIRIZINE(LEVOCETIRIZINE) [Concomitant]
  13. ROZEX(METRONIDAZOLE) [Concomitant]

REACTIONS (10)
  - ALANINE AMINOTRANSFERASE INCREASED [None]
  - ASPARTATE AMINOTRANSFERASE INCREASED [None]
  - BLOOD ALKALINE PHOSPHATASE INCREASED [None]
  - BLOOD BILIRUBIN INCREASED [None]
  - BLOOD LACTATE DEHYDROGENASE INCREASED [None]
  - COUGH [None]
  - DYSPNOEA [None]
  - FEBRILE NEUTROPENIA [None]
  - HEPATIC FUNCTION ABNORMAL [None]
  - THROMBOCYTOPENIA [None]
